FAERS Safety Report 5827050-2 (Version None)
Quarter: 2008Q3

REPORT INFORMATION
  Report Type: 
  Country: None (occurrence: None)
  Receive Date: 20080730
  Receipt Date: 20080725
  Transmission Date: 20090109
  Serious: Yes (Hospitalization)
  Sender: FDA-Public Use
  Company Number: A0739930A

PATIENT
  Age: 51 Year
  Sex: Female
  Weight: 86.8 kg

DRUGS (8)
  1. AVANDIA [Suspect]
     Dosage: 8MG PER DAY
     Route: 065
     Dates: start: 20010101, end: 20070101
  2. PREVACID [Concomitant]
     Dosage: 30MG PER DAY
  3. ATENOLOL [Concomitant]
     Dosage: 25MG PER DAY
  4. LIPITOR [Concomitant]
     Dosage: 10MG PER DAY
  5. ASPIRIN [Concomitant]
     Dosage: 81MG PER DAY
  6. GLUCOPHAGE [Concomitant]
     Dosage: 1000MG TWICE PER DAY
  7. AMARYL [Concomitant]
     Indication: DRUG USE FOR UNKNOWN INDICATION
     Dates: start: 20000101
  8. METOPROLOL TARTRATE [Concomitant]
     Dates: start: 20000101

REACTIONS (6)
  - ACUTE MYOCARDIAL INFARCTION [None]
  - CARDIAC DISORDER [None]
  - CARDIAC FLUTTER [None]
  - CARDIAC STRESS TEST [None]
  - CORONARY ARTERY DISEASE [None]
  - MYOCARDIAL ISCHAEMIA [None]
